FAERS Safety Report 25260219 (Version 1)
Quarter: 2025Q2

REPORT INFORMATION
  Report Type: Spontaneous
  Country: US (occurrence: None)
  Receive Date: 20250501
  Receipt Date: 20250501
  Transmission Date: 20250717
  Serious: Yes (Life-Threatening)
  Sender: FDA-CTU
  Company Number: None

PATIENT
  Age: 44 Year
  Sex: Male

DRUGS (1)
  1. LISINOPRIL [Suspect]
     Active Substance: LISINOPRIL
     Indication: Angioedema

REACTIONS (3)
  - Angioedema [None]
  - Erythema multiforme [None]
  - Adverse drug reaction [None]

NARRATIVE: CASE EVENT DATE: 20241011
